FAERS Safety Report 25001769 (Version 1)
Quarter: 2025Q1

REPORT INFORMATION
  Report Type: Spontaneous
  Country: AU (occurrence: AU)
  Receive Date: 20250224
  Receipt Date: 20250224
  Transmission Date: 20250409
  Serious: Yes (Other)
  Sender: AMNEAL
  Company Number: AU-AMNEAL PHARMACEUTICALS-2024-AMRX-04787

PATIENT

DRUGS (2)
  1. ONGENTYS [Suspect]
     Active Substance: OPICAPONE
     Indication: Product used for unknown indication
     Route: 065
     Dates: end: 2024
  2. MELATONIN [Suspect]
     Active Substance: MELATONIN
     Indication: Product used for unknown indication
     Route: 065

REACTIONS (10)
  - Hemiplegia [Recovered/Resolved]
  - Swollen tongue [Recovered/Resolved]
  - Burning sensation [Not Recovered/Not Resolved]
  - Mouth swelling [Recovered/Resolved]
  - Hyperhidrosis [Recovered/Resolved]
  - Eyelid disorder [Recovered/Resolved]
  - Tongue discomfort [Recovered/Resolved]
  - Gait inability [Recovered/Resolved]
  - Speech disorder [Recovered/Resolved]
  - Dyspnoea [Recovered/Resolved]

NARRATIVE: CASE EVENT DATE: 20240101
